FAERS Safety Report 4358268-6 (Version None)
Quarter: 2004Q2

REPORT INFORMATION
  Report Type: 
  Country: None (occurrence: None)
  Receive Date: 20040510
  Receipt Date: 20040430
  Transmission Date: 20050107
  Serious: Yes (Hospitalization)
  Sender: FDA-Public Use
  Company Number: HQWYE703304MAY04

PATIENT
  Age: 14 Year
  Sex: Female

DRUGS (3)
  1. RAPAMUNE [Suspect]
     Indication: PROPHYLAXIS AGAINST TRANSPLANT REJECTION
     Dosage: 7 MG 1X PER 1 DAY ORAL
     Route: 048
     Dates: start: 20031103
  2. MYCOPHENOLATE MOFETIL (MYCOPHENOLATE MOFETIL) [Concomitant]
  3. METHYLPREDNISOLONE [Concomitant]

REACTIONS (8)
  - CHEST X-RAY ABNORMAL [None]
  - DRUG INEFFECTIVE [None]
  - IMMUNOSUPPRESSION [None]
  - PHARYNGOLARYNGEAL PAIN [None]
  - PNEUMONIA [None]
  - PYREXIA [None]
  - RESPIRATORY RATE INCREASED [None]
  - TACHYPNOEA [None]
